FAERS Safety Report 12530663 (Version 2)
Quarter: 2018Q2

REPORT INFORMATION
  Report Type: Report from Study
  Country: KR (occurrence: KR)
  Receive Date: 20160706
  Receipt Date: 20180523
  Transmission Date: 20180711
  Serious: Yes (Hospitalization)
  Sender: FDA-Public Use
  Company Number: KR-EISAI MEDICAL RESEARCH-EC-2016-018211

PATIENT
  Age: 55 Year
  Sex: Female
  Weight: 47.3 kg

DRUGS (11)
  1. LEGALON [Concomitant]
     Active Substance: DIETARY SUPPLEMENT\HERBALS\MILK THISTLE
  2. URSODEOXYCHOLIC ACID [Concomitant]
     Active Substance: URSODIOL
  3. SOLETON [Concomitant]
     Active Substance: ZALTOPROFEN
  4. HALAVEN [Suspect]
     Active Substance: ERIBULIN MESYLATE
     Indication: BREAST CANCER
     Route: 041
     Dates: start: 20150529, end: 20150728
  5. LEUCOSTIM [Concomitant]
     Active Substance: FILGRASTIM
  6. TYLENOL [Concomitant]
     Active Substance: ACETAMINOPHEN
  7. HALAVEN [Suspect]
     Active Substance: ERIBULIN MESYLATE
     Route: 041
     Dates: start: 20150811, end: 20151027
  8. SYMBALTA [Concomitant]
  9. ADCAL [Concomitant]
     Active Substance: CALCIUM CARBONATE
  10. JOINS TAB [Concomitant]
  11. ALBIS [Concomitant]
     Active Substance: BISMUTH SUBCITRATE\RANITIDINE HYDROCHLORIDE\SUCRALFATE

REACTIONS (1)
  - Hepatic function abnormal [Recovered/Resolved]

NARRATIVE: CASE EVENT DATE: 20150811
